FAERS Safety Report 9535830 (Version 1)
Quarter: 2013Q3

REPORT INFORMATION
  Report Type: Spontaneous
  Country: DE (occurrence: DE)
  Receive Date: 20130919
  Receipt Date: 20130919
  Transmission Date: 20140515
  Serious: Yes (Other)
  Sender: FDA-Public Use
  Company Number: DE-JNJFOC-20130906563

PATIENT
  Age: 9 Week
  Sex: Male

DRUGS (5)
  1. IBUPROFEN [Suspect]
     Indication: HEADACHE
     Route: 063
  2. PARACETAMOL [Suspect]
     Route: 063
  3. PARACETAMOL [Suspect]
     Indication: HEADACHE
     Route: 063
  4. THEOPHYLLINE [Suspect]
     Indication: HEADACHE
     Route: 063
  5. CIPROFLOXACIN [Suspect]
     Indication: WOUND
     Route: 063

REACTIONS (2)
  - Exposure during breast feeding [Unknown]
  - Hepatobiliary disease [Unknown]
